FAERS Safety Report 16146425 (Version 1)
Quarter: 2019Q2

REPORT INFORMATION
  Report Type: Report from Study
  Country: MX (occurrence: MX)
  Receive Date: 20190402
  Receipt Date: 20190402
  Transmission Date: 20190711
  Serious: Yes (Hospitalization, Other)
  Sender: FDA-Public Use
  Company Number: MX-UCBSA-2018035192

PATIENT
  Sex: Female
  Weight: 80 kg

DRUGS (4)
  1. LEVETIRACETAM. [Suspect]
     Active Substance: LEVETIRACETAM
     Dosage: 1000 MG, 2X/DAY (BID)
     Route: 048
  2. LEVETIRACETAM. [Suspect]
     Active Substance: LEVETIRACETAM
     Dosage: 1000 MG, 3X/DAY (TID)
     Route: 048
  3. LEVETIRACETAM. [Suspect]
     Active Substance: LEVETIRACETAM
     Dosage: 500 MG, 3X/DAY (TID)
     Route: 048
  4. LEVETIRACETAM. [Suspect]
     Active Substance: LEVETIRACETAM
     Indication: EPILEPSY
     Dosage: STRENGTH:1G 1 TAB MORNING, 1 TAB AT NOON, 1 TAB AFTERNOON AND 1 TAB AT NIGHT, 4X/DAY (QID)
     Route: 048

REACTIONS (6)
  - Off label use [Unknown]
  - Product complaint [Unknown]
  - Overdose [Unknown]
  - Seizure [Recovered/Resolved]
  - Pregnancy [Unknown]
  - Coma [Recovered/Resolved]

NARRATIVE: CASE EVENT DATE: 2006
